FAERS Safety Report 9216166 (Version 1)
Quarter: 2013Q2

REPORT INFORMATION
  Report Type: Spontaneous
  Country: US (occurrence: US)
  Receive Date: 20130408
  Receipt Date: 20130408
  Transmission Date: 20140414
  Serious: No
  Sender: FDA-Public Use
  Company Number: US-BAYER-2013-036796

PATIENT
  Sex: Female

DRUGS (1)
  1. AVELOX [Suspect]
     Indication: BRONCHITIS
     Dosage: 400 MG, QD
     Route: 048

REACTIONS (3)
  - Back pain [Recovered/Resolved]
  - Abdominal pain [Recovered/Resolved]
  - Nausea [Recovered/Resolved]
